FAERS Safety Report 19670003 (Version 1)
Quarter: 2021Q3

REPORT INFORMATION
  Report Type: Report from Study
  Country: IN (occurrence: IN)
  Receive Date: 20210806
  Receipt Date: 20210806
  Transmission Date: 20211014
  Serious: Yes (Death, Other)
  Sender: FDA-Public Use
  Company Number: IN-ASTRAZENECA-2021A670932

PATIENT
  Age: 64 Year
  Sex: Female

DRUGS (1)
  1. IMFINZI [Suspect]
     Active Substance: DURVALUMAB
     Indication: BLADDER CANCER
     Route: 041
     Dates: start: 20200511

REACTIONS (2)
  - Death [Fatal]
  - Metastatic carcinoma of the bladder [Unknown]

NARRATIVE: CASE EVENT DATE: 20210728
